FAERS Safety Report 21313941 (Version 2)
Quarter: 2022Q3

REPORT INFORMATION
  Report Type: Report from Study
  Country: US (occurrence: US)
  Receive Date: 20220909
  Receipt Date: 20220914
  Transmission Date: 20221026
  Serious: Yes (Hospitalization, Other)
  Sender: FDA-Public Use
  Company Number: US-Taiho Oncology Inc-EU-2021-03931

PATIENT
  Age: 70 Year
  Sex: Male
  Weight: 88.45 kg

DRUGS (9)
  1. LONSURF [Suspect]
     Active Substance: TIPIRACIL HYDROCHLORIDE\TRIFLURIDINE
     Indication: Colon cancer
     Dosage: CYCLE 1-2
     Route: 048
     Dates: start: 20211206
  2. LONSURF [Suspect]
     Active Substance: TIPIRACIL HYDROCHLORIDE\TRIFLURIDINE
     Indication: Colon cancer
     Dosage: CYCLE NUMBER UNKNOWN
     Route: 048
     Dates: start: 20211127
  3. FUROSEMIDE [Concomitant]
     Active Substance: FUROSEMIDE
     Indication: Product used for unknown indication
  4. ISOSORBIDE [Concomitant]
     Active Substance: ISOSORBIDE
     Indication: Product used for unknown indication
  5. MAGNESIUM [Concomitant]
     Active Substance: MAGNESIUM
     Indication: Product used for unknown indication
  6. POTASSIUM CITRATE [Concomitant]
     Active Substance: POTASSIUM CITRATE
     Indication: Product used for unknown indication
  7. ATROPINE [Concomitant]
     Active Substance: ATROPINE
     Indication: Product used for unknown indication
  8. UNSPECIFIED INGREDIENT [Concomitant]
     Active Substance: UNSPECIFIED INGREDIENT
     Indication: Product used for unknown indication
  9. ENTRESTO [Concomitant]
     Active Substance: SACUBITRIL\VALSARTAN
     Indication: Product used for unknown indication
     Dosage: 24-26 MG

REACTIONS (11)
  - Cardiac failure congestive [Unknown]
  - Blood creatinine decreased [Unknown]
  - Vascular stent occlusion [Unknown]
  - Spinal column injury [Unknown]
  - Back injury [Unknown]
  - Swelling [Unknown]
  - Cytopenia [Unknown]
  - Therapy interrupted [Unknown]
  - Visual impairment [Unknown]
  - Hypoaesthesia [Unknown]
  - Fall [Unknown]

NARRATIVE: CASE EVENT DATE: 20211201
